FAERS Safety Report 13354421 (Version 1)
Quarter: 2017Q1

REPORT INFORMATION
  Report Type: Spontaneous
  Country: US (occurrence: US)
  Receive Date: 20170321
  Receipt Date: 20170321
  Transmission Date: 20170429
  Serious: Yes (Other)
  Sender: FDA-Public Use
  Company Number: US-ASTELLAS-2017US010558

PATIENT
  Sex: Female

DRUGS (1)
  1. TARCEVA [Suspect]
     Active Substance: ERLOTINIB HYDROCHLORIDE
     Indication: LUNG NEOPLASM MALIGNANT
     Route: 065
     Dates: start: 20160510, end: 20170306

REACTIONS (11)
  - Pain [Unknown]
  - Insomnia [Unknown]
  - Cough [Unknown]
  - Dehydration [Unknown]
  - Dyspnoea [Unknown]
  - Weight decreased [Unknown]
  - Constipation [Unknown]
  - Chest pain [Unknown]
  - Decreased appetite [Unknown]
  - EGFR gene mutation [Unknown]
  - Nausea [Unknown]
